FAERS Safety Report 20796483 (Version 2)
Quarter: 2022Q2

REPORT INFORMATION
  Report Type: Spontaneous
  Country: US (occurrence: US)
  Receive Date: 20220506
  Receipt Date: 20220512
  Transmission Date: 20220721
  Serious: Yes (Hospitalization)
  Sender: FDA-Public Use
  Company Number: US-IPSEN Group, Research and Development-2022-12549

PATIENT
  Age: 46 Year
  Sex: Female

DRUGS (4)
  1. DYSPORT [Suspect]
     Active Substance: ABOBOTULINUMTOXINA
     Indication: Torticollis
     Dosage: 800 IU INTO BLE EVERY 3 MONTHS
     Route: 030
     Dates: start: 20220425, end: 20220425
  2. BACLOFEN TAB [Concomitant]
     Dosage: 20 MG
  3. DOFETILIDE [Concomitant]
     Active Substance: DOFETILIDE
     Dosage: 125 MCG
  4. XARELTO TAB [Concomitant]
     Dosage: 20 MG

REACTIONS (3)
  - Cardiac disorder [Not Recovered/Not Resolved]
  - Dyspnoea [Not Recovered/Not Resolved]
  - Pneumonia [Not Recovered/Not Resolved]

NARRATIVE: CASE EVENT DATE: 20220101
